FAERS Safety Report 8479617-3 (Version None)
Quarter: 2012Q2

REPORT INFORMATION
  Report Type: 
  Country: None (occurrence: None)
  Receive Date: 20120629
  Receipt Date: 20120625
  Transmission Date: 20120825
  Serious: No
  Sender: FDA-Public Use
  Company Number: US-PFIZER INC-2012145149

PATIENT
  Sex: Female
  Weight: 68.027 kg

DRUGS (15)
  1. GENOTROPIN [Suspect]
     Indication: HYPOPITUITARISM
     Dosage: 0.6MG DAILY
  2. GENOTROPIN [Suspect]
     Dosage: 0.6MG DAILY
  3. LEVOXYL [Suspect]
     Dosage: 50 UG, DAILY
  4. LEVOXYL [Suspect]
     Dosage: 25 UG, DAILY
  5. HYDROCODONE [Concomitant]
     Indication: HYPOPITUITARISM
     Dosage: 20 MG, DAILY
  6. LEVOXYL [Suspect]
     Dosage: 50 UG, DAILY
  7. GENOTROPIN [Suspect]
     Dosage: 0.8MG DAILY
  8. VIVELLE-DOT [Concomitant]
     Indication: HYPOPITUITARISM
     Dosage: 0.05 MG, UNK
  9. GENOTROPIN [Suspect]
     Indication: BLOOD GROWTH HORMONE DECREASED
     Dosage: 0.4 MG, DAILY
     Dates: start: 20040101
  10. GENOTROPIN [Suspect]
     Dosage: 0.8MG, DAILY
  11. GENOTROPIN [Suspect]
     Dosage: 1 MG, DAILY
  12. TESTOSTERONE [Concomitant]
     Indication: HYPOPITUITARISM
     Dosage: 2 ML, UNK
  13. GENOTROPIN [Suspect]
     Dosage: 0.6MG DAILY
  14. LEVOXYL [Suspect]
     Dosage: 25 UG, DAILY
  15. LEVOXYL [Suspect]
     Indication: THYROID DISORDER
     Dosage: 25 UG, DAILY

REACTIONS (6)
  - THYROXINE INCREASED [None]
  - DRUG INEFFECTIVE [None]
  - TRI-IODOTHYRONINE INCREASED [None]
  - WEIGHT LOSS POOR [None]
  - ENDOCRINE TEST ABNORMAL [None]
  - FATIGUE [None]
